FAERS Safety Report 18988585 (Version 12)
Quarter: 2022Q1

REPORT INFORMATION
  Report Type: Spontaneous
  Country: US (occurrence: US)
  Receive Date: 20210309
  Receipt Date: 20220131
  Transmission Date: 20220423
  Serious: Yes (Hospitalization, Other)
  Sender: FDA-Public Use
  Company Number: US-PFIZER INC-2021236483

PATIENT
  Age: 65 Year
  Sex: Female
  Weight: 71.655 kg

DRUGS (4)
  1. PREGABALIN [Suspect]
     Active Substance: PREGABALIN
     Indication: Seizure
     Dosage: 150 MG, DAILY (25 MG 6X A DAY)
     Route: 048
  2. PREGABALIN [Suspect]
     Active Substance: PREGABALIN
     Indication: Neuropathy peripheral
  3. PREGABALIN [Suspect]
     Active Substance: PREGABALIN
     Indication: Epilepsy
  4. PREGABALIN [Suspect]
     Active Substance: PREGABALIN
     Indication: Congenital neuropathy

REACTIONS (4)
  - Suicidal ideation [Recovered/Resolved]
  - Fear [Recovered/Resolved]
  - Depression [Unknown]
  - Drug ineffective [Unknown]

NARRATIVE: CASE EVENT DATE: 20210324
